FAERS Safety Report 10741457 (Version 1)
Quarter: 2015Q1

REPORT INFORMATION
  Report Type: Report from Study
  Country: US (occurrence: US)
  Receive Date: 20150127
  Receipt Date: 20150127
  Transmission Date: 20150721
  Serious: Yes (Hospitalization)
  Sender: FDA-Public Use
  Company Number: US-AMGEN-USASL2015005974

PATIENT
  Age: 73 Year
  Sex: Male

DRUGS (2)
  1. POMALYST [Concomitant]
     Active Substance: POMALIDOMIDE
     Indication: PLASMA CELL MYELOMA
  2. KYPROLIS [Suspect]
     Active Substance: CARFILZOMIB
     Indication: PLASMA CELL MYELOMA
     Dosage: UNK
     Route: 042
     Dates: start: 201412

REACTIONS (1)
  - Right ventricular systolic pressure increased [Not Recovered/Not Resolved]

NARRATIVE: CASE EVENT DATE: 201501
